FAERS Safety Report 8405966-0 (Version None)
Quarter: 2012Q2

REPORT INFORMATION
  Report Type: 
  Country: None (occurrence: None)
  Receive Date: 20120529
  Receipt Date: 20010306
  Transmission Date: 20120825
  Serious: Yes (Life-Threatening, Hospitalization)
  Sender: FDA-Public Use
  Company Number: 02100-JPN-01-0009

PATIENT
  Age: 72 Year
  Sex: Male
  Weight: 58 kg

DRUGS (22)
  1. METHYCOBAL (MECOBALAMIN) TABLET, 500 UG 11/02/1999 TO 01/25/2001 [Concomitant]
  2. NORVASK (AMLODIPINE) TABLET, 5 MG ONGOING [Concomitant]
  3. DIBETOS (BUFORMIN HYDROCHLORIDE) TABLET, 50 MG UNK TO 01/25/2001 [Concomitant]
  4. LIPLE (ALPROSTADIL) INJECTION, 10 UG 08/10/1999 TO --/--/1999 [Concomitant]
  5. ANPLAG (SARPOGRELATE HYDROCHLORIDE) TABLET, 100 MG 08/28/2000 TO 01/25 [Concomitant]
  6. GYUSHA-KENKIGAN EXTRACT (CHINESE HERBAL MEDICINE) POWDER (EXCEPT [DPO] [Concomitant]
  7. EUGLUCON (GLIBENCLAMIDE) TABLET, 2.5 MG ONGOING [Concomitant]
  8. GLUCOBAY (ACARBOSE) TABLET, 100 MG ONGOING [Concomitant]
  9. JUZEN-TAIHO-TO (CHINESE HERBAL MEDICINE) POWDER (EXCEPT [DPO]) UNK TO [Concomitant]
  10. ALDOMET (METHYLDOPA) TABLET, 250 MG UNK TO 01/25/2001 [Concomitant]
  11. BUFFERIN (ACETYLSALICYLIC ACID, MAGNESIUM CARBONATE, ALUMINIUM GLYCINA [Concomitant]
  12. BEOFERMIN (LACTOMIN) POWDER (EXCEPT [DPO]), 1 G GRAM(S) 08/10/1999 TO [Concomitant]
  13. SELBEX (TEPRENONE) TABLET, 50 MG UNK TO 01/25/2001 [Concomitant]
  14. PLETAL [Suspect]
     Indication: PERIPHERAL ARTERIAL OCCLUSIVE DISEASE
     Dosage: 100 MG, BID, ORAL
     Route: 048
     Dates: start: 19990907, end: 20010125
  15. WARFARIN (WARFARIN) TABLET, 1 MG 08/10/1999 TO ONGOING [Concomitant]
  16. PROTECADIN (LAFUTIDINE) TABLET, 10 MG 09/--/2000 TO 01/25/2001 [Concomitant]
  17. GASTER (FAMOTIDINE) TABLET, 10 MG UNK TO 01/25/2001 [Concomitant]
  18. PROCYLIN (BERAPROST SODIUM) TABLET, 20 UG 09/--/2000 TO ONGOING [Concomitant]
  19. MAGNESIUM OXIDE (MAGNESIUM OXIDE) POWDER (EXCEPT [DPO]), 10 G GRAM(S) [Concomitant]
  20. MUCOSTA (REBAMIPIDE) TABLET, 100 MG 09/--/2000 TO ONGOING [Concomitant]
  21. LIPLE (ALPROSTADIL) INJECTION, 10 UG 08/22/2000 TO UNK [Concomitant]
  22. JUVELA (TOCOPHEROL) CAPSULE, 100 MG 07/25/2000 TO 01/25/2001 [Concomitant]

REACTIONS (7)
  - SUPRAVENTRICULAR TACHYCARDIA [None]
  - PLEURAL EFFUSION [None]
  - SINUS TACHYCARDIA [None]
  - VENTRICULAR HYPOKINESIA [None]
  - CARDIAC FAILURE CONGESTIVE [None]
  - BUNDLE BRANCH BLOCK LEFT [None]
  - COUGH [None]
